FAERS Safety Report 5713072-9 (Version None)
Quarter: 2008Q2

REPORT INFORMATION
  Report Type: 
  Country: None (occurrence: None)
  Receive Date: 20080418
  Receipt Date: 20080408
  Transmission Date: 20081010
  Serious: Yes (Death, Other)
  Sender: FDA-Public Use
  Company Number: 2008-00719

PATIENT
  Age: 58 Year
  Sex: Female
  Weight: 48 kg

DRUGS (2)
  1. VELCADE [Suspect]
     Indication: MULTIPLE MYELOMA
     Dosage: 0.70 MG/M2, INTRAVENOUS; 1 MG/M2 INTRAVENOUS
     Route: 042
     Dates: start: 20080128, end: 20080221
  2. VELCADE [Suspect]
     Indication: MULTIPLE MYELOMA
     Dosage: 0.70 MG/M2, INTRAVENOUS; 1 MG/M2 INTRAVENOUS
     Route: 042
     Dates: start: 20080303, end: 20080327

REACTIONS (3)
  - CONDITION AGGRAVATED [None]
  - DISEASE PROGRESSION [None]
  - PLATELET COUNT DECREASED [None]
